FAERS Safety Report 5479694-8 (Version None)
Quarter: 2007Q4

REPORT INFORMATION
  Report Type: 
  Country: None (occurrence: None)
  Receive Date: 20071008
  Receipt Date: 20070918
  Transmission Date: 20080405
  Serious: Yes (Death, Hospitalization)
  Sender: FDA-Public Use
  Company Number: FR-AVENTIS-200712964FR

PATIENT
  Age: 83 Year
  Sex: Female
  Weight: 37 kg

DRUGS (14)
  1. LASIX [Suspect]
     Route: 048
  2. COLCHICINE [Suspect]
     Route: 048
     Dates: start: 20070803, end: 20070817
  3. EFFEXOR [Suspect]
     Indication: DEPRESSION
     Route: 048
     Dates: start: 20070614, end: 20070101
  4. EFFEXOR [Suspect]
     Dosage: DOSE: DOSE
     Route: 048
     Dates: start: 20070101, end: 20070820
  5. AMOXICILLIN [Suspect]
     Route: 048
     Dates: start: 20070813, end: 20070817
  6. AUGMENTIN '125' [Suspect]
     Route: 048
     Dates: start: 20070817, end: 20070801
  7. AUGMENTIN '125' [Suspect]
     Route: 048
     Dates: start: 20070801, end: 20070821
  8. DIGOXIN [Suspect]
     Route: 048
     Dates: end: 20070817
  9. AMLOR [Concomitant]
     Route: 048
  10. KALEORID [Concomitant]
     Route: 048
  11. KARDEGIC                           /00002703/ [Concomitant]
     Route: 048
  12. XANAX [Concomitant]
     Route: 048
  13. LAROXIL [Concomitant]
     Route: 048
  14. RISPERDAL [Concomitant]
     Route: 048
     Dates: end: 20070803

REACTIONS (7)
  - ASTHENIA [None]
  - CARDIOACTIVE DRUG LEVEL INCREASED [None]
  - CYTOLYTIC HEPATITIS [None]
  - DYSPNOEA [None]
  - HEPATIC FAILURE [None]
  - HYPERKALAEMIA [None]
  - RENAL FAILURE ACUTE [None]
